FAERS Safety Report 12717882 (Version 2)
Quarter: 2016Q4

REPORT INFORMATION
  Report Type: Spontaneous
  Country: JP (occurrence: JP)
  Receive Date: 20160906
  Receipt Date: 20161003
  Transmission Date: 20170207
  Serious: Yes (Other)
  Sender: FDA-Public Use
  Company Number: PHJP2016JP018492

PATIENT
  Age: 50 Year
  Sex: Male

DRUGS (4)
  1. CELESTAMINE [Suspect]
     Active Substance: BETAMETHASONE\DEXCHLORPHENIRAMINE MALEATE
     Indication: RASH
     Dosage: UNK
     Route: 048
  2. TASIGNA [Suspect]
     Active Substance: NILOTINIB
     Indication: CHRONIC MYELOID LEUKAEMIA
     Dosage: 600 MG, QD
     Route: 048
     Dates: start: 20120106
  3. TASIGNA [Suspect]
     Active Substance: NILOTINIB
     Dosage: 800 MG, QD
     Route: 048
     Dates: start: 201208, end: 20160523
  4. SPRYCEL [Concomitant]
     Active Substance: DASATINIB
     Indication: CHRONIC MYELOID LEUKAEMIA
     Dosage: UNK
     Route: 065

REACTIONS (9)
  - Glycosylated haemoglobin increased [Unknown]
  - Cerebrovascular stenosis [Recovering/Resolving]
  - Pleural effusion [Recovered/Resolved]
  - Rash [Recovering/Resolving]
  - Cerebral artery stenosis [Unknown]
  - Facial paralysis [Unknown]
  - Diabetes mellitus [Recovering/Resolving]
  - White blood cell count increased [Unknown]
  - Pruritus [Unknown]

NARRATIVE: CASE EVENT DATE: 201201
